FAERS Safety Report 25700185 (Version 2)
Quarter: 2025Q3

REPORT INFORMATION
  Report Type: Spontaneous
  Country: EU (occurrence: EU)
  Receive Date: 20250819
  Receipt Date: 20250909
  Transmission Date: 20251020
  Serious: Yes (Other)
  Sender: BOEHRINGER INGELHEIM
  Company Number: EU-BoehringerIngelheim-2025-BI-089971

PATIENT
  Age: 87 Year
  Sex: Male
  Weight: 80 kg

DRUGS (1)
  1. DABIGATRAN [Suspect]
     Active Substance: DABIGATRAN
     Indication: Atrial fibrillation
     Dates: end: 20250806

REACTIONS (5)
  - Cerebral artery occlusion [Unknown]
  - Presyncope [Unknown]
  - Dysarthria [Unknown]
  - Sopor [Unknown]
  - Facial paresis [Unknown]

NARRATIVE: CASE EVENT DATE: 20250806
